FAERS Safety Report 20912829 (Version 1)
Quarter: 2022Q2

REPORT INFORMATION
  Report Type: Report from Study
  Country: US (occurrence: US)
  Receive Date: 20220603
  Receipt Date: 20220603
  Transmission Date: 20220721
  Serious: No
  Sender: FDA-Public Use
  Company Number: US-AGIOS-2205US03062

PATIENT
  Age: 19 Year
  Sex: Female

DRUGS (1)
  1. MITAPIVAT [Suspect]
     Active Substance: MITAPIVAT
     Indication: Product used for unknown indication
     Dosage: 5 MILLIGRAM
     Route: 048
     Dates: start: 20220318

REACTIONS (3)
  - COVID-19 [Unknown]
  - Blood pressure increased [Unknown]
  - Hepatic enzyme increased [Unknown]
